FAERS Safety Report 20780570 (Version 1)
Quarter: 2022Q2

REPORT INFORMATION
  Report Type: Spontaneous
  Country: NL (occurrence: None)
  Receive Date: 20220504
  Receipt Date: 20220504
  Transmission Date: 20220721
  Serious: Yes (Life-Threatening, Hospitalization, Disabling)
  Sender: FDA-Public Use
  Company Number: None

PATIENT
  Age: 55 Year
  Sex: Female
  Weight: 67 kg

DRUGS (6)
  1. OCRELIZUMAB [Suspect]
     Active Substance: OCRELIZUMAB
     Indication: Relapsing-remitting multiple sclerosis
     Dosage: ELKE 6 MAANDEN 1 INFUUS
     Route: 065
     Dates: start: 2021, end: 20220420
  2. CHOLECALCIFEROL [Concomitant]
     Active Substance: CHOLECALCIFEROL
     Dosage: CAPSULE, 800 EENHEDEN
  3. POVIDON [Concomitant]
     Dosage: OOGDRUPPELS, 20 MG/ML (MILLIGRAM PER MILLILITER)
  4. METHIMAZOLE [Concomitant]
     Active Substance: METHIMAZOLE
     Dosage: TABLET, 10 MG (MILLIGRAM)
  5. ACETAMINOPHEN [Concomitant]
     Active Substance: ACETAMINOPHEN
     Dosage: ZETPIL, 1000 MG (MILLIGRAM)
  6. BACLOFEN [Concomitant]
     Active Substance: BACLOFEN
     Dosage: TABLET, 2,5 MG (MILLIGRAM)

REACTIONS (1)
  - Cerebral haemorrhage [Not Recovered/Not Resolved]

NARRATIVE: CASE EVENT DATE: 20220408
